FAERS Safety Report 7169745-7 (Version None)
Quarter: 2010Q4

REPORT INFORMATION
  Report Type: 
  Country: None (occurrence: None)
  Receive Date: 20101217
  Receipt Date: 20100104
  Transmission Date: 20110411
  Serious: No
  Sender: FDA-Public Use
  Company Number: A0835483A

PATIENT
  Age: 57 Year
  Sex: Female
  Weight: 57.7 kg

DRUGS (1)
  1. SORIATANE [Suspect]
     Dosage: 25MG SEE DOSAGE TEXT
     Route: 048
     Dates: start: 20080101

REACTIONS (7)
  - CHAPPED LIPS [None]
  - DRUG INEFFECTIVE [None]
  - ERYTHEMA [None]
  - PRODUCT QUALITY ISSUE [None]
  - PRURITUS [None]
  - SKIN DISORDER [None]
  - SKIN SWELLING [None]
